FAERS Safety Report 9182488 (Version 1)
Quarter: 2013Q1

REPORT INFORMATION
  Report Type: Spontaneous
  Country: JP (occurrence: JP)
  Receive Date: 20130322
  Receipt Date: 20130322
  Transmission Date: 20140127
  Serious: Yes (Death)
  Sender: FDA-Public Use
  Company Number: JP-SANOFI-AVENTIS-2013SA026668

PATIENT
  Sex: Male

DRUGS (3)
  1. PLAVIX [Suspect]
     Indication: CEREBRAL INFARCTION
     Route: 048
  2. OZAGREL [Suspect]
     Indication: CEREBRAL INFARCTION
     Route: 065
  3. FAMOTIDINE [Suspect]
     Indication: GASTRITIS
     Route: 048

REACTIONS (2)
  - Platelet count decreased [Fatal]
  - Neutrophil count decreased [Fatal]
